FAERS Safety Report 16078944 (Version 1)
Quarter: 2019Q1

REPORT INFORMATION
  Report Type: Report from Study
  Country: CA (occurrence: CA)
  Receive Date: 20190315
  Receipt Date: 20190315
  Transmission Date: 20190418
  Serious: Yes (Death, Hospitalization, Other)
  Sender: FDA-Public Use
  Company Number: CA-GLAXOSMITHKLINE-CA2018GSK220876

PATIENT
  Age: 75 Year
  Sex: Female

DRUGS (2)
  1. MEPOLIZUMAB [Suspect]
     Active Substance: MEPOLIZUMAB
     Dosage: 100 MG, Z,MONTHLY
     Route: 042
  2. MEPOLIZUMAB [Suspect]
     Active Substance: MEPOLIZUMAB
     Indication: ASTHMA
     Dosage: 100 MG, Z,MONTHLY
     Route: 042

REACTIONS (5)
  - Dyspnoea [Not Recovered/Not Resolved]
  - Rash macular [Unknown]
  - Lung disorder [Fatal]
  - Lower respiratory tract infection [Unknown]
  - Pruritus generalised [Recovered/Resolved]

NARRATIVE: CASE EVENT DATE: 201811
